FAERS Safety Report 5982914-4 (Version None)
Quarter: 2008Q4

REPORT INFORMATION
  Report Type: 
  Country: None (occurrence: None)
  Receive Date: 20081125
  Receipt Date: 20070930
  Transmission Date: 20090506
  Serious: Yes (Hospitalization)
  Sender: FDA-Public Use
  Company Number: 2007MP000527

PATIENT
  Sex: Female

DRUGS (1)
  1. GLIADEL [Suspect]
     Dosage: 1X;ICER
     Route: 012

REACTIONS (1)
  - INTRACRANIAL HAEMATOMA [None]
